FAERS Safety Report 4907150-1 (Version None)
Quarter: 2006Q1

REPORT INFORMATION
  Report Type: 
  Country: None (occurrence: None)
  Receive Date: 20060206
  Receipt Date: 20051202
  Transmission Date: 20060701
  Serious: Yes (Hospitalization)
  Sender: FDA-Public Use
  Company Number: JPKYO-S-20050028-V001

PATIENT
  Age: 63 Year
  Sex: Female

DRUGS (2)
  1. NAVELBINE (VINORELBINE) SOLUTION FOR INJECTION [Suspect]
     Indication: BREAST CANCER
     Route: 042
     Dates: start: 20050819, end: 20050819
  2. NAVELBINE (VINORELBINE) SOLUTION FOR INJECTION [Suspect]
     Indication: BREAST CANCER
     Route: 042
     Dates: start: 20050912, end: 20050912

REACTIONS (4)
  - ABDOMINAL DISTENSION [None]
  - DISEASE PROGRESSION [None]
  - DYSURIA [None]
  - URINARY RETENTION [None]
